FAERS Safety Report 21073635 (Version 4)
Quarter: 2022Q3

REPORT INFORMATION
  Report Type: Other
  Country: US (occurrence: None)
  Receive Date: 20220713
  Receipt Date: 20220818
  Transmission Date: 20221027
  Serious: No
  Sender: FDA-Public Use
  Company Number: US-ROCHE-3136316

PATIENT
  Age: 52 Year
  Sex: Female
  Weight: 74.910 kg

DRUGS (4)
  1. OCREVUS [Suspect]
     Active Substance: OCRELIZUMAB
     Indication: Relapsing multiple sclerosis
     Dosage: INFUSE 600MG ONCE IN 6 MONTHS.
     Route: 042
  2. MYRBETRIQ [Concomitant]
     Active Substance: MIRABEGRON
  3. FROVA [Concomitant]
     Active Substance: FROVATRIPTAN SUCCINATE
  4. COVID-19 VACCINE NOS [Concomitant]
     Active Substance: COVID-19 VACCINE NOS

REACTIONS (1)
  - COVID-19 [Recovered/Resolved]

NARRATIVE: CASE EVENT DATE: 20220603
